FAERS Safety Report 5634895-0 (Version None)
Quarter: 2008Q1

REPORT INFORMATION
  Report Type: 
  Country: None (occurrence: None)
  Receive Date: 20080131
  Receipt Date: 20071022
  Transmission Date: 20080703
  Serious: No
  Sender: FDA-Public Use
  Company Number: PHEH2007US12267

PATIENT
  Age: 67 Year
  Sex: Male
  Weight: 81.2 kg

DRUGS (4)
  1. TEKTURNA [Suspect]
     Indication: HYPERTENSION
     Dosage: 150 MG, ORAL
     Route: 048
     Dates: start: 20070710
  2. ALTACE [Concomitant]
  3. ALTACAND HCT (CANDESARTAN CILEXETIL, HYDROCHLOROTHIAZIDE) [Concomitant]
  4. VYTORIN [Concomitant]

REACTIONS (2)
  - COUGH [None]
  - THROAT IRRITATION [None]
